FAERS Safety Report 4562818-4 (Version None)
Quarter: 2005Q1

REPORT INFORMATION
  Report Type: 
  Country: None (occurrence: None)
  Receive Date: 20050127
  Receipt Date: 20050114
  Transmission Date: 20050727
  Serious: Yes (Other)
  Sender: FDA-Public Use
  Company Number: FR-GLAXOSMITHKLINE-B0365014A

PATIENT
  Age: 36 Year
  Sex: Male

DRUGS (3)
  1. DEROXAT [Suspect]
     Indication: ILL-DEFINED DISORDER
     Route: 048
     Dates: start: 20040601
  2. ALCOHOL [Suspect]
     Route: 048
  3. XANAX [Concomitant]

REACTIONS (7)
  - ABNORMAL BEHAVIOUR [None]
  - AGGRESSION [None]
  - AGITATION [None]
  - ALCOHOL INTERACTION [None]
  - AMNESIA [None]
  - DRUG INTERACTION [None]
  - INCOHERENT [None]
